FAERS Safety Report 6120391-3 (Version None)
Quarter: 2009Q1

REPORT INFORMATION
  Report Type: 
  Country: None (occurrence: None)
  Receive Date: 20090316
  Receipt Date: 20090316
  Transmission Date: 20090719
  Serious: No
  Sender: FDA-Public Use
  Company Number: None

PATIENT
  Age: 73 Year
  Sex: Female
  Weight: 58.9676 kg

DRUGS (1)
  1. ALDARA [Suspect]
     Indication: SQUAMOUS CELL CARCINOMA
     Dosage: 1 FOR 3 WEEKS FACE
     Dates: start: 20090112, end: 20090202

REACTIONS (2)
  - DISORIENTATION [None]
  - MEMORY IMPAIRMENT [None]
